FAERS Safety Report 22250376 (Version 2)
Quarter: 2023Q2

REPORT INFORMATION
  Report Type: Spontaneous
  Country: CA (occurrence: CA)
  Receive Date: 20230425
  Receipt Date: 20230608
  Transmission Date: 20230721
  Serious: No
  Sender: FDA-Public Use
  Company Number: CA-002147023-NVSC2023CA092490

PATIENT
  Age: 83 Year
  Sex: Female
  Weight: 88 kg

DRUGS (10)
  1. CLINDAMYCIN [Suspect]
     Active Substance: CLINDAMYCIN
     Indication: Antibiotic prophylaxis
     Dosage: 900 MG, ONCE/SINGLE (PREOP)
     Route: 042
     Dates: start: 20180507
  2. ACETAMINOPHEN [Concomitant]
     Active Substance: ACETAMINOPHEN
     Indication: Product used for unknown indication
     Dosage: 975 MG (PREOP)
     Route: 048
     Dates: start: 20180507, end: 20180507
  3. HEPARIN [Concomitant]
     Active Substance: HEPARIN SODIUM
     Indication: Product used for unknown indication
     Dosage: 5000 U (PREOP)
     Route: 058
     Dates: start: 20180507, end: 20180507
  4. CARVEDILOL [Concomitant]
     Active Substance: CARVEDILOL
     Indication: Product used for unknown indication
     Dosage: 12.5 MG, BID
     Route: 048
     Dates: start: 20180507
  5. ROSUVASTATIN [Concomitant]
     Active Substance: ROSUVASTATIN
     Indication: Product used for unknown indication
     Dosage: 10 MG (HS)
     Route: 048
     Dates: start: 20180507
  6. ZOPICLONE [Concomitant]
     Active Substance: ZOPICLONE
     Indication: Product used for unknown indication
     Dosage: 3.75-7.5 MG (HS PRN)
     Route: 048
     Dates: start: 20180507
  7. HYDROMORPHONE [Concomitant]
     Active Substance: HYDROMORPHONE
     Indication: Product used for unknown indication
     Dosage: 0.5-3 MG Q3H (PRN)
     Route: 058
     Dates: start: 20180507
  8. HYDROMORPHONE [Concomitant]
     Active Substance: HYDROMORPHONE
     Dosage: 0.5-3 MG Q3H (PRN)
     Route: 048
     Dates: start: 20180507
  9. DIMENHYDRINATE [Concomitant]
     Active Substance: DIMENHYDRINATE
     Indication: Product used for unknown indication
     Dosage: 25-50 MG Q6H (PRN)
     Route: 042
     Dates: start: 20180507
  10. METOCLOPRAMIDE [Concomitant]
     Active Substance: METOCLOPRAMIDE
     Indication: Product used for unknown indication
     Dosage: 10-20 MG Q6H (PRN)
     Route: 042
     Dates: start: 20180507

REACTIONS (1)
  - Drug ineffective [Unknown]
